FAERS Safety Report 5689142-0 (Version None)
Quarter: 2008Q1

REPORT INFORMATION
  Report Type: 
  Country: None (occurrence: None)
  Receive Date: 20080331
  Receipt Date: 19921002
  Transmission Date: 20080703
  Serious: Yes (Death, Disabling, Other)
  Sender: FDA-Public Use
  Company Number: DE-ROCHE-920318439001

PATIENT
  Age: 22 Year
  Sex: Male

DRUGS (5)
  1. RIVOTRIL [Suspect]
     Route: 048
  2. MORPHINE [Suspect]
     Indication: DRUG USE FOR UNKNOWN INDICATION
     Route: 065
  3. DIPHENHYDRAMINE HCL [Concomitant]
     Route: 065
  4. BARBITURATE [Concomitant]
     Route: 065
  5. BENZODIAZEPINE [Concomitant]
     Route: 065

REACTIONS (2)
  - MULTIPLE DRUG OVERDOSE [None]
  - THERAPEUTIC AGENT TOXICITY [None]
